FAERS Safety Report 5447637-9 (Version None)
Quarter: 2007Q3

REPORT INFORMATION
  Report Type: 
  Country: None (occurrence: None)
  Receive Date: 20070905
  Receipt Date: 20070823
  Transmission Date: 20080115
  Serious: Yes (Other)
  Sender: FDA-Public Use
  Company Number: GXKR2007BR07335

PATIENT
  Age: 31 Year
  Sex: Female

DRUGS (2)
  1. AROTIN [Suspect]
     Indication: PANIC DISORDER
     Dosage: 20 MG, BID, ORAL
     Route: 048
  2. ALPRAZOLAM [Concomitant]

REACTIONS (6)
  - BLOOD PRESSURE DECREASED [None]
  - BURNING SENSATION [None]
  - CONSTIPATION [None]
  - NAUSEA [None]
  - SYNCOPE [None]
  - VOMITING [None]
